FAERS Safety Report 19712064 (Version 1)
Quarter: 2021Q3

REPORT INFORMATION
  Report Type: Spontaneous
  Country: BR (occurrence: BR)
  Receive Date: 20210816
  Receipt Date: 20210816
  Transmission Date: 20211014
  Serious: Yes (Hospitalization)
  Sender: FDA-Public Use
  Company Number: BR-NOVOPROD-814119

PATIENT
  Age: 38 Year
  Sex: Male
  Weight: 62 kg

DRUGS (8)
  1. TRESIBA [Suspect]
     Active Substance: INSULIN DEGLUDEC
     Dosage: MAINTAINED TRESIBA 26 UI IN THE MORNING
     Route: 065
  2. TRESIBA [Suspect]
     Active Substance: INSULIN DEGLUDEC
     Indication: PRODUCT USED FOR UNKNOWN INDICATION
     Dosage: 20 UI MORNING ,WITH DOSE ADJUSTMENT EVERY 3 DAYS
     Route: 065
  3. GLIMEPIRIDE. [Concomitant]
     Active Substance: GLIMEPIRIDE
     Indication: PRODUCT USED FOR UNKNOWN INDICATION
     Dosage: 2 MG, QID
     Route: 065
  4. FIASP [Suspect]
     Active Substance: INSULIN ASPART
     Indication: PRODUCT USED FOR UNKNOWN INDICATION
     Dosage: STARTING AT 120 AT THE TIME OF MAIN MEALS AND A SECOND CORRECTION TABLE FOR POSTMEAL PLASMA GLUCOSE
     Route: 065
  5. TRESIBA [Suspect]
     Active Substance: INSULIN DEGLUDEC
     Dosage: INCREASED THE DOSE OF TRESIBA,26 IU
     Route: 065
  6. DAPAGLIFLOZIN. [Concomitant]
     Active Substance: DAPAGLIFLOZIN
     Indication: PRODUCT USED FOR UNKNOWN INDICATION
     Dosage: 10 MG, QD
     Route: 065
  7. FIASP [Suspect]
     Active Substance: INSULIN ASPART
     Dosage: 3X DAY
     Route: 065
  8. SITAGLIPTIN [Concomitant]
     Active Substance: SITAGLIPTIN
     Indication: PRODUCT USED FOR UNKNOWN INDICATION
     Dosage: (50/500 MG) 2 X DAY
     Route: 065

REACTIONS (15)
  - Thirst [Unknown]
  - Hypoglycaemia [Unknown]
  - Visual impairment [Recovering/Resolving]
  - Hyperglycaemia [Recovered/Resolved]
  - Respiratory failure [Recovered/Resolved]
  - Infection [Recovered/Resolved]
  - Fatigue [Unknown]
  - Micturition urgency [Recovering/Resolving]
  - Diabetes mellitus [Unknown]
  - Cardio-respiratory arrest [Recovered/Resolved]
  - COVID-19 [Recovered/Resolved]
  - Weight decreased [Unknown]
  - Asthenia [Recovering/Resolving]
  - Increased appetite [Unknown]
  - Apathy [Recovering/Resolving]
